FAERS Safety Report 6102501-7 (Version None)
Quarter: 2009Q1

REPORT INFORMATION
  Report Type: 
  Country: None (occurrence: None)
  Receive Date: 20090304
  Receipt Date: 20080821
  Transmission Date: 20090719
  Serious: No
  Sender: FDA-Public Use
  Company Number: A0583663A

PATIENT
  Sex: Male

DRUGS (12)
  1. REQUIP [Suspect]
     Indication: RESTLESS LEGS SYNDROME
     Dosage: 4MG AT NIGHT
     Route: 048
     Dates: start: 20051124, end: 20080820
  2. REQUIP XL [Suspect]
     Indication: RESTLESS LEGS SYNDROME
     Dosage: 2TAB PER DAY
  3. DIOVAN [Concomitant]
  4. SYNTHROID [Concomitant]
  5. LIPITOR [Concomitant]
  6. ZIAC [Concomitant]
  7. KLONOPIN [Concomitant]
     Dosage: 1.25MG AT NIGHT
  8. VYTORIN [Concomitant]
  9. OXYBUTYNIN CHLORIDE [Concomitant]
  10. PRILOSEC [Concomitant]
  11. NORVASC [Concomitant]
  12. MULTIPLE VITAMINS [Concomitant]

REACTIONS (10)
  - FATIGUE [None]
  - INITIAL INSOMNIA [None]
  - INSOMNIA [None]
  - MIDDLE INSOMNIA [None]
  - NAUSEA [None]
  - PAIN IN EXTREMITY [None]
  - RESTLESS LEGS SYNDROME [None]
  - SOMNOLENCE [None]
  - SPONTANEOUS PENILE ERECTION [None]
  - TREMOR [None]
